FAERS Safety Report 11863030 (Version 2)
Quarter: 2016Q1

REPORT INFORMATION
  Report Type: Report from Study
  Country: FR (occurrence: FR)
  Receive Date: 20151223
  Receipt Date: 20160203
  Transmission Date: 20160526
  Serious: Yes (Hospitalization)
  Sender: FDA-Public Use
  Company Number: FR-BIOGEN-2015BI098440

PATIENT
  Age: 37 Year
  Sex: Female
  Weight: 66 kg

DRUGS (10)
  1. AVONEX [Concomitant]
     Active Substance: INTERFERON BETA-1A
     Indication: MULTIPLE SCLEROSIS
     Route: 030
     Dates: start: 20140417, end: 20150702
  2. PARACETAMOL [Concomitant]
     Active Substance: ACETAMINOPHEN
     Indication: PANCREATITIS
     Dates: start: 20150710, end: 20150710
  3. IBUPROFEN. [Concomitant]
     Active Substance: IBUPROFEN
     Indication: PROPHYLAXIS
     Route: 048
     Dates: start: 20140127
  4. ATARAX [Concomitant]
     Active Substance: HYDROXYZINE\HYDROXYZINE HYDROCHLORIDE
  5. BIIB033 [Suspect]
     Active Substance: OPICINUMAB
     Indication: MULTIPLE SCLEROSIS
     Route: 042
     Dates: start: 20140410, end: 20150611
  6. VARNOLINE [Concomitant]
     Active Substance: DESOGESTREL\ETHINYL ESTRADIOL
     Indication: CONTRACEPTION
     Route: 048
     Dates: start: 2010
  7. AUGMENTIN [Concomitant]
     Active Substance: AMOXICILLIN\CLAVULANATE POTASSIUM
     Dates: start: 20150707
  8. AVONEX [Concomitant]
     Active Substance: INTERFERON BETA-1A
     Route: 030
     Dates: start: 20150716
  9. BIIB033 [Suspect]
     Active Substance: OPICINUMAB
     Route: 042
     Dates: start: 20150806
  10. NEURONTIN [Concomitant]
     Active Substance: GABAPENTIN
     Indication: NEURALGIA
     Route: 048
     Dates: start: 20141102

REACTIONS (1)
  - Pancreatitis [Recovered/Resolved]

NARRATIVE: CASE EVENT DATE: 20150709
